FAERS Safety Report 9393719 (Version 1)
Quarter: 2013Q3

REPORT INFORMATION
  Report Type: Spontaneous
  Country: CO (occurrence: CO)
  Receive Date: 20130710
  Receipt Date: 20130710
  Transmission Date: 20140515
  Serious: Yes (Other)
  Sender: FDA-Public Use
  Company Number: CO-AMGEN-COLSP2013047877

PATIENT
  Age: 48 Year
  Sex: Female

DRUGS (6)
  1. ENBREL [Suspect]
     Indication: RHEUMATOID ARTHRITIS
     Dosage: 50 MG, WEEKLY
     Route: 058
     Dates: start: 2008
  2. CALTRATE PLUS [Suspect]
     Indication: RHEUMATOID ARTHRITIS
     Dosage: UNK
     Dates: start: 201301
  3. METHOTREXATE /00113802/ [Suspect]
     Indication: RHEUMATOID ARTHRITIS
     Dosage: UNK, QWK
     Route: 048
     Dates: start: 2005
  4. METHOTREXATE /00113802/ [Suspect]
     Dosage: 4 TABLETS OF 2.5MG, WEEKLY
     Route: 048
     Dates: start: 2005
  5. FOLIC ACID [Concomitant]
     Indication: RHEUMATOID ARTHRITIS
     Dosage: 1 MG, 1X/DAY
     Route: 048
     Dates: start: 2008
  6. FLUOXETINE [Concomitant]
     Indication: RHEUMATOID ARTHRITIS
     Dosage: 20 MG, UNK
     Dates: start: 2012

REACTIONS (8)
  - Heart disease congenital [Unknown]
  - Vomiting [Not Recovered/Not Resolved]
  - Decreased appetite [Not Recovered/Not Resolved]
  - Local swelling [Recovered/Resolved]
  - Fluid retention [Unknown]
  - Lip dry [Unknown]
  - Asthenia [Unknown]
  - Heart rate increased [Unknown]
